FAERS Safety Report 6317998-7 (Version None)
Quarter: 2009Q3

REPORT INFORMATION
  Report Type: 
  Country: None (occurrence: None)
  Receive Date: 20090821
  Receipt Date: 20090813
  Transmission Date: 20100115
  Serious: Yes (Other)
  Sender: FDA-Public Use
  Company Number: AU-PFIZER INC-2009254081

PATIENT

DRUGS (3)
  1. ZOLOFT [Suspect]
     Dosage: 50 MG, UNK
  2. ATIVAN [Concomitant]
     Indication: SLEEP DISORDER
     Dosage: 1 MG, 1X/DAY
  3. VALIUM [Concomitant]
     Dosage: 2 MG, AS NEEDED

REACTIONS (9)
  - AGORAPHOBIA [None]
  - AMNESIA [None]
  - COGNITIVE DISORDER [None]
  - DELIRIUM [None]
  - DIARRHOEA [None]
  - DYSGRAPHIA [None]
  - MUSCULAR WEAKNESS [None]
  - SEROTONIN SYNDROME [None]
  - TREMOR [None]
